FAERS Safety Report 8389251-1 (Version None)
Quarter: 2012Q2

REPORT INFORMATION
  Report Type: 
  Country: None (occurrence: None)
  Receive Date: 20120528
  Receipt Date: 20120516
  Transmission Date: 20120825
  Serious: Yes (Hospitalization)
  Sender: FDA-Public Use
  Company Number: JP-BAYER-2012-048804

PATIENT
  Age: 86 Year
  Sex: Male
  Weight: 40 kg

DRUGS (2)
  1. NITROGLYCERIN [Concomitant]
  2. ASPIRIN [Suspect]
     Indication: CEREBRAL INFARCTION
     Route: 048

REACTIONS (2)
  - MYOCARDIAL ISCHAEMIA [None]
  - GASTROINTESTINAL HAEMORRHAGE [None]
